FAERS Safety Report 5182455-0 (Version None)
Quarter: 2006Q4

REPORT INFORMATION
  Report Type: 
  Country: None (occurrence: None)
  Receive Date: 20061220
  Receipt Date: 20060920
  Transmission Date: 20070319
  Serious: No
  Sender: FDA-Public Use
  Company Number: US-GLAXOSMITHKLINE-A0620827A

PATIENT
  Age: 43 Year
  Sex: Male

DRUGS (2)
  1. COMMIT [Suspect]
     Dosage: 4MG SEE DOSAGE TEXT
     Dates: start: 20060630, end: 20060917
  2. COMMIT [Concomitant]
     Indication: ARTHRITIS
     Dosage: 2MG SEE DOSAGE TEXT
     Route: 048
     Dates: start: 20060920

REACTIONS (3)
  - ARTHRITIS [None]
  - INTENTIONAL DRUG MISUSE [None]
  - NICOTINE DEPENDENCE [None]
